FAERS Safety Report 18491914 (Version 1)
Quarter: 2020Q4

REPORT INFORMATION
  Report Type: Spontaneous
  Country: US (occurrence: US)
  Receive Date: 20201111
  Receipt Date: 20201111
  Transmission Date: 20210114
  Serious: Yes (Life-Threatening, Other)
  Sender: FDA-Public Use
  Company Number: US-MYLANLABS-2020M1093155

PATIENT
  Age: 64 Year
  Sex: Male
  Weight: 95 kg

DRUGS (9)
  1. LANSOPRAZOLE. [Concomitant]
     Active Substance: LANSOPRAZOLE
     Dosage: UNK
  2. METOPROLOL. [Concomitant]
     Active Substance: METOPROLOL
     Dosage: UNK
  3. RISPERIDONE. [Concomitant]
     Active Substance: RISPERIDONE
     Indication: SEDATION
     Dosage: ONLY GIVEN 1 DOSE
     Dates: start: 20030513
  4. FLUCONAZOLE. [Concomitant]
     Active Substance: FLUCONAZOLE
     Indication: FUNGAL INFECTION
     Dosage: 400 MILLIGRAM, BID
     Route: 042
     Dates: start: 20030510, end: 20030516
  5. ALBUTEROL                          /00139501/ [Concomitant]
     Active Substance: ALBUTEROL
     Dosage: UNK
  6. HALOPERIDOL. [Suspect]
     Active Substance: HALOPERIDOL
     Indication: AGITATION
     Dosage: 5 MILLIGRAM, Q6H
     Dates: start: 20030510, end: 20030513
  7. CEFATRIZINE [Concomitant]
     Active Substance: CEFATRIZINE
     Dosage: UNK
  8. CALCIUM ACETATE. [Concomitant]
     Active Substance: CALCIUM ACETATE
     Dosage: UNK
  9. METRONIDAZOLE. [Concomitant]
     Active Substance: METRONIDAZOLE
     Dosage: 500 MILLIGRAM, Q8H
     Route: 048
     Dates: start: 20030513, end: 20030518

REACTIONS (11)
  - Pulse absent [Not Recovered/Not Resolved]
  - Tachyarrhythmia [Not Recovered/Not Resolved]
  - Arrhythmia [Not Recovered/Not Resolved]
  - Cardio-respiratory arrest [Not Recovered/Not Resolved]
  - Ventricular tachyarrhythmia [Not Recovered/Not Resolved]
  - Electrocardiogram QT prolonged [Not Recovered/Not Resolved]
  - Torsade de pointes [Not Recovered/Not Resolved]
  - Cardiogenic shock [Not Recovered/Not Resolved]
  - Shock [Not Recovered/Not Resolved]
  - Respiratory failure [Not Recovered/Not Resolved]
  - Respiratory depression [Not Recovered/Not Resolved]

NARRATIVE: CASE EVENT DATE: 20030514
